FAERS Safety Report 9812183 (Version 2)
Quarter: 2014Q1

REPORT INFORMATION
  Report Type: Spontaneous
  Country: US (occurrence: US)
  Receive Date: 20140112
  Receipt Date: 20140215
  Transmission Date: 20141002
  Serious: Yes (Other)
  Sender: FDA-Public Use
  Company Number: US-ROCHE-1331715

PATIENT
  Sex: Female

DRUGS (1)
  1. TNKASE [Suspect]
     Indication: DEEP VEIN THROMBOSIS
     Route: 042

REACTIONS (2)
  - Blood fibrinogen decreased [Unknown]
  - Product quality issue [Unknown]
